FAERS Safety Report 18529155 (Version 4)
Quarter: 2021Q1

REPORT INFORMATION
  Report Type: Report from Study
  Country: US (occurrence: US)
  Receive Date: 20201120
  Receipt Date: 20210107
  Transmission Date: 20210419
  Serious: Yes (Death)
  Sender: FDA-Public Use
  Company Number: NVSC2020US309366

PATIENT
  Sex: Male

DRUGS (1)
  1. ENTRESTO [Suspect]
     Active Substance: SACUBITRIL\VALSARTAN
     Indication: PRODUCT USED FOR UNKNOWN INDICATION
     Dosage: UNK
     Route: 048

REACTIONS (7)
  - Hypersensitivity [Unknown]
  - Fluid retention [Unknown]
  - Sinus disorder [Unknown]
  - Concomitant disease aggravated [Fatal]
  - Death [Fatal]
  - Productive cough [Unknown]
  - Fatigue [Unknown]
